FAERS Safety Report 14720133 (Version 1)
Quarter: 2018Q2

REPORT INFORMATION
  Report Type: Not Available
  Country: DE (occurrence: DE)
  Receive Date: 20180405
  Receipt Date: 20180405
  Transmission Date: 20180711
  Serious: Yes (Other)
  Sender: FDA-Public Use
  Company Number: DE-SYNTHON BV-NL01PV18_46821

PATIENT
  Age: 75 Year
  Sex: Male

DRUGS (1)
  1. TAMSULOSIN- ABZ [Suspect]
     Active Substance: TAMSULOSIN
     Dosage: 0.8 MILLIGRAM DAILY;
     Route: 048
     Dates: start: 20180321

REACTIONS (2)
  - Overdose [Unknown]
  - Haematochezia [Unknown]

NARRATIVE: CASE EVENT DATE: 20180321
